FAERS Safety Report 7468976-6 (Version None)
Quarter: 2011Q2

REPORT INFORMATION
  Report Type: 
  Country: None (occurrence: None)
  Receive Date: 20110429
  Receipt Date: 20110425
  Transmission Date: 20111010
  Serious: Yes (Other)
  Sender: FDA-Public Use
  Company Number: 2011SP018280

PATIENT
  Age: 24 Year
  Sex: Female

DRUGS (1)
  1. DESOGESTREL AND ETHINYL ESTRADIOL [Suspect]
     Indication: CONTRACEPTION
     Dosage: I DF; PO
     Route: 048

REACTIONS (3)
  - PREGNANCY ON ORAL CONTRACEPTIVE [None]
  - DRUG EXPOSURE DURING PREGNANCY [None]
  - ABORTION SPONTANEOUS COMPLICATED [None]
